FAERS Safety Report 5578579-6 (Version None)
Quarter: 2007Q4

REPORT INFORMATION
  Report Type: 
  Country: None (occurrence: None)
  Receive Date: 20071227
  Receipt Date: 20071219
  Transmission Date: 20080405
  Serious: Yes (Other)
  Sender: FDA-Public Use
  Company Number: 2007SP022713

PATIENT
  Age: 70 Year
  Sex: Male

DRUGS (8)
  1. VIRAFERONPEG [Suspect]
     Indication: HEPATIC CIRRHOSIS
     Dosage: 80 MCG; QW; SC
     Route: 058
     Dates: start: 20020401
  2. VIRAFERONPEG [Suspect]
     Indication: HEPATITIS C
     Dosage: 80 MCG; QW; SC
     Route: 058
     Dates: start: 20020401
  3. REBETOL [Suspect]
     Indication: HEPATIC CIRRHOSIS
     Dosage: PO
     Route: 048
     Dates: start: 20020101
  4. REBETOL [Suspect]
     Indication: HEPATITIS C
     Dosage: PO
     Route: 048
     Dates: start: 20020101
  5. DETENSIEL [Concomitant]
  6. HYZAAR [Concomitant]
  7. RABEPRAZOLE SODIUM [Concomitant]
  8. LEXOMIL [Concomitant]

REACTIONS (5)
  - COGNITIVE DISORDER [None]
  - CONFUSIONAL STATE [None]
  - IRRITABILITY [None]
  - MEMORY IMPAIRMENT [None]
  - MINI MENTAL STATUS EXAMINATION ABNORMAL [None]
